FAERS Safety Report 7990768-X (Version None)
Quarter: 2011Q4

REPORT INFORMATION
  Report Type: 
  Country: None (occurrence: None)
  Receive Date: 20111219
  Receipt Date: 20111219
  Transmission Date: 20120403
  Serious: Yes (Life-Threatening, Hospitalization, Disabling)
  Sender: FDA-Public Use
  Company Number: None

PATIENT
  Age: 56 Year
  Sex: Male
  Weight: 88.45 kg

DRUGS (2)
  1. HYDREA [Concomitant]
  2. LEVAQUIN [Suspect]
     Indication: PNEUMONIA

REACTIONS (8)
  - FLUID RETENTION [None]
  - CARDIO-RESPIRATORY ARREST [None]
  - PULMONARY EMBOLISM [None]
  - PAIN IN EXTREMITY [None]
  - RENAL FAILURE [None]
  - BONE PAIN [None]
  - ABASIA [None]
  - ERYTHEMA [None]
